FAERS Safety Report 9260489 (Version 2)
Quarter: 2013Q2

REPORT INFORMATION
  Report Type: Spontaneous
  Country: QA (occurrence: QA)
  Receive Date: 20130429
  Receipt Date: 20130509
  Transmission Date: 20140414
  Serious: Yes (Other)
  Sender: FDA-Public Use
  Company Number: QA-ROCHE-1219237

PATIENT
  Age: 6 Year
  Sex: Male
  Weight: 33.5 kg

DRUGS (3)
  1. ACTILYSE [Suspect]
     Indication: PLEURAL EFFUSION
     Dosage: 3 MG (0.1 MG/KG) DILUTED IN 30 ML OF NORMAL SALINE
     Route: 065
  2. CEFTRIAXONE [Concomitant]
     Route: 042
  3. VANCOMYCIN [Concomitant]
     Route: 042

REACTIONS (4)
  - Pleural haemorrhage [Unknown]
  - Tachypnoea [Unknown]
  - Asthenia [Unknown]
  - Pallor [Unknown]
